FAERS Safety Report 7823625-X (Version None)
Quarter: 2011Q4

REPORT INFORMATION
  Report Type: 
  Country: None (occurrence: None)
  Receive Date: 20111019
  Receipt Date: 20111010
  Transmission Date: 20120403
  Serious: Yes (Hospitalization, Other)
  Sender: FDA-Public Use
  Company Number: US-PFIZER INC-2011241740

PATIENT
  Sex: Female

DRUGS (1)
  1. DEPO-PROVERA [Suspect]
     Dosage: UNK

REACTIONS (7)
  - DEPRESSION [None]
  - ANXIETY [None]
  - LOSS OF CONSCIOUSNESS [None]
  - DIZZINESS [None]
  - SYNCOPE [None]
  - BIPOLAR I DISORDER [None]
  - HEADACHE [None]
